FAERS Safety Report 16115873 (Version 1)
Quarter: 2019Q1

REPORT INFORMATION
  Report Type: Spontaneous
  Country: US (occurrence: US)
  Receive Date: 20190326
  Receipt Date: 20190326
  Transmission Date: 20190418
  Serious: Yes (Hospitalization, Other)
  Sender: FDA-Public Use
  Company Number: US-AUROBINDO-AUR-APL-2019-015063

PATIENT

DRUGS (7)
  1. OXYCODONE [Suspect]
     Active Substance: OXYCODONE
     Dosage: UNK UNK, ONCE A DAY,APPROXIMATELY #100 WORTH OF NON-PRESCRIBED OXYCODONE
     Route: 048
  2. OXYCODONE [Suspect]
     Active Substance: OXYCODONE
     Dosage: 120 MILLIGRAM, ONCE A DAY
     Route: 048
  3. NAPROXEN. [Concomitant]
     Active Substance: NAPROXEN
     Indication: MUSCLE SPASMS
     Dosage: UNK
     Route: 065
  4. OXYCODONE [Suspect]
     Active Substance: OXYCODONE
     Indication: DRUG DEPENDENCE
     Dosage: ESCALATING AMOUNTS
     Route: 048
  5. OMEPRAZOLE. [Concomitant]
     Active Substance: OMEPRAZOLE
     Indication: PRODUCT USED FOR UNKNOWN INDICATION
     Dosage: UNK
     Route: 065
  6. VARENICLINE [Concomitant]
     Active Substance: VARENICLINE
     Indication: PRODUCT USED FOR UNKNOWN INDICATION
     Dosage: UNK
     Route: 065
  7. CYCLOBENZAPRINE. [Concomitant]
     Active Substance: CYCLOBENZAPRINE
     Indication: MUSCLE SPASMS
     Dosage: UNK
     Route: 065

REACTIONS (27)
  - Drug withdrawal syndrome [Recovered/Resolved]
  - Feeling guilty [Recovered/Resolved]
  - Impulsive behaviour [Recovered/Resolved]
  - Fatigue [Recovered/Resolved]
  - Cough [Recovered/Resolved]
  - Energy increased [Recovered/Resolved]
  - Muscle spasms [Recovered/Resolved]
  - Drug use disorder [Recovered/Resolved]
  - Pyrexia [Recovered/Resolved]
  - Nausea [Recovered/Resolved]
  - Hypersomnia [Recovered/Resolved]
  - Limb discomfort [Recovered/Resolved]
  - Decreased interest [Recovered/Resolved]
  - Diarrhoea [Recovered/Resolved]
  - Increased appetite [Recovered/Resolved]
  - Asthenia [Recovered/Resolved]
  - Back pain [Recovered/Resolved]
  - Vomiting [Recovered/Resolved]
  - Myalgia [Recovered/Resolved]
  - Poor quality sleep [Recovered/Resolved]
  - Tachyphrenia [Recovered/Resolved]
  - Road traffic accident [Recovered/Resolved]
  - Toxicity to various agents [Recovered/Resolved]
  - Prescription drug used without a prescription [Recovered/Resolved]
  - Hypokinesia [Recovered/Resolved]
  - Neck pain [Recovered/Resolved]
  - Pressure of speech [Recovered/Resolved]
